FAERS Safety Report 10166681 (Version 2)
Quarter: 2014Q2

REPORT INFORMATION
  Report Type: Spontaneous
  Country: ZA (occurrence: None)
  Receive Date: 20140508
  Receipt Date: 20140514
  Transmission Date: 20141212
  Serious: Yes (Death)
  Sender: FDA-Public Use
  Company Number: 2321287

PATIENT
  Sex: 0

DRUGS (2)
  1. DEXMEDETOMIDINE HYDROCHLORIDE [Suspect]
     Indication: CORONARY ARTERY BYPASS
     Dates: start: 20140418, end: 20140418
  2. DEXMEDETOMIDINE HYDROCHLORIDE [Suspect]
     Dates: start: 20140418, end: 20140418

REACTIONS (3)
  - Arrhythmia [None]
  - Electrolyte imbalance [None]
  - Dialysis [None]
